FAERS Safety Report 12621941 (Version 1)
Quarter: 2016Q3

REPORT INFORMATION
  Report Type: Spontaneous
  Country: FR (occurrence: FR)
  Receive Date: 20160804
  Receipt Date: 20160804
  Transmission Date: 20161109
  Serious: Yes (Hospitalization)
  Sender: FDA-Public Use
  Company Number: FR-PFIZER INC-2016363861

PATIENT
  Age: 47 Year
  Sex: Female

DRUGS (5)
  1. HEROIN [Suspect]
     Active Substance: DIACETYLMORPHINE
     Dosage: UNK
  2. XANAX [Suspect]
     Active Substance: ALPRAZOLAM
     Dosage: 0.75 MG, DAILY
  3. DAFALGAN CODEINE [Concomitant]
     Active Substance: ACETAMINOPHEN\CODEINE PHOSPHATE
     Dosage: 1000 MG, 3X/DAY
  4. TERCIAN [Suspect]
     Active Substance: CYAMEMAZINE
     Dosage: 25 MG, 2X/DAY
  5. SUBUTEX [Suspect]
     Active Substance: BUPRENORPHINE HYDROCHLORIDE
     Dosage: 10 MG, DAILY

REACTIONS (3)
  - Drug abuser [Unknown]
  - Drug dependence [Unknown]
  - Intentional product misuse [Unknown]
